FAERS Safety Report 9507833 (Version 1)
Quarter: 2013Q1

REPORT INFORMATION
  Report Type: Spontaneous
  Country: US (occurrence: None)
  Receive Date: 20130305
  Receipt Date: 20130305
  Transmission Date: 20140127
  Serious: Yes (Hospitalization, Other)
  Sender: FDA-Public Use
  Company Number: 163-21880-12050819

PATIENT
  Age: 72 Year
  Sex: Male
  Weight: 68.04 kg

DRUGS (12)
  1. REVLIMID (LENALIDOMIDE) (CAPSULES) [Suspect]
     Indication: PLASMA CELL MYELOMA
     Dosage: 25 MG, 14 IN 14 D, PO
     Route: 048
     Dates: start: 20120130
  2. VELCADE [Suspect]
     Indication: PLASMA CELL MYELOMA
     Dosage: Q 21 DAYS, UNK
     Dates: start: 201111
  3. ALPHAGAN EYE GTTS (BRIMONIDINE TARTRATE) (EYE DROPS) [Concomitant]
  4. LYRICA (PREGABALIN) (UNKNOWN) [Concomitant]
  5. PROTONIX (PANTOPRAZOLE SODIUM) (UNKNOWN) [Concomitant]
  6. MIRALAX (MACROGOL) (UNKNOWN) [Concomitant]
  7. FLOMAX (TAMSULOSIN HYDROCHLORIDE) (UNKNOWN) [Concomitant]
  8. FENTANYL (FENTANYL) (POULTICE OR PATCH) [Concomitant]
  9. DILAUDID (HYDROMORPHONE HYDROCHLORIDE) (UNKNOWN) [Concomitant]
  10. ADVIL (IBUPROFEN) (UNKNOWN) [Concomitant]
  11. ASA (ACETYLSALICYLIC ACID) (UNKNOWN) [Concomitant]
  12. CELEBREX (CELECOXIB) (UNKNOWN) [Concomitant]

REACTIONS (4)
  - Sepsis [None]
  - White blood cell count decreased [None]
  - Neutrophil count decreased [None]
  - Platelet count decreased [None]
